FAERS Safety Report 4985873-6 (Version None)
Quarter: 2006Q2

REPORT INFORMATION
  Report Type: 
  Country: None (occurrence: None)
  Receive Date: 20060421
  Receipt Date: 20060405
  Transmission Date: 20061013
  Serious: Yes (Hospitalization)
  Sender: FDA-Public Use
  Company Number: 34416

PATIENT
  Age: 84 Year
  Sex: Female

DRUGS (6)
  1. CIPROFLOXACIN [Suspect]
     Dates: start: 20060217, end: 20060220
  2. METRONIDAZOLE [Concomitant]
  3. WARFARIN SODIUM [Concomitant]
  4. DOMPERIDONE [Concomitant]
  5. SENNA [Concomitant]
  6. CODEINE [Concomitant]

REACTIONS (3)
  - DYSPHAGIA [None]
  - OEDEMA MOUTH [None]
  - SWOLLEN TONGUE [None]
